FAERS Safety Report 4637959-3 (Version None)
Quarter: 2005Q2

REPORT INFORMATION
  Report Type: 
  Country: None (occurrence: None)
  Receive Date: 20050415
  Receipt Date: 20050401
  Transmission Date: 20051028
  Serious: Yes (Hospitalization, Other)
  Sender: FDA-Public Use
  Company Number: 200504IM000124

PATIENT
  Age: 38 Year
  Sex: Male

DRUGS (1)
  1. INFERAX (INTERFERON ALFACON-1) [Suspect]
     Indication: HEPATITIS C

REACTIONS (4)
  - BLOOD THYROID STIMULATING HORMONE DECREASED [None]
  - SCHIZOPHRENIA [None]
  - SUICIDE ATTEMPT [None]
  - TRANSAMINASES INCREASED [None]
